FAERS Safety Report 25902855 (Version 1)
Quarter: 2025Q4

REPORT INFORMATION
  Report Type: Report from Study
  Country: US (occurrence: US)
  Receive Date: 20251009
  Receipt Date: 20251009
  Transmission Date: 20260118
  Serious: Yes (Other)
  Sender: ABBVIE
  Company Number: US-ABBVIE-6494314

PATIENT
  Sex: Female
  Weight: 43 kg

DRUGS (1)
  1. SKYRIZI [Suspect]
     Active Substance: RISANKIZUMAB-RZAA
     Indication: Crohn^s disease
     Route: 058
     Dates: start: 20241118

REACTIONS (5)
  - Gastrointestinal neoplasm [Not Recovered/Not Resolved]
  - Visual impairment [Recovering/Resolving]
  - Injection site papule [Recovered/Resolved]
  - Stenosis [Not Recovered/Not Resolved]
  - Weight decreased [Recovering/Resolving]

NARRATIVE: CASE EVENT DATE: 20250901
